FAERS Safety Report 8560824 (Version 2)
Quarter: 2012Q4

REPORT INFORMATION
  Report Type: Report from Study
  Country: US (occurrence: US)
  Receive Date: 20120514
  Receipt Date: 20120911
  Transmission Date: 20130627
  Serious: Yes (Hospitalization, Other)
  Sender: FDA-Public Use
  Company Number: US-ELI_LILLY_AND_COMPANY-US201205000620

PATIENT
  Age: 49 Year
  Sex: Female
  Weight: 49.89 kg

DRUGS (10)
  1. OLANZAPINE [Suspect]
     Dosage: 300 mg, UNK
     Route: 030
     Dates: start: 20120116
  2. OLANZAPINE [Suspect]
     Dosage: 300 mg, UNK
     Route: 030
     Dates: start: 20120130
  3. OLANZAPINE LONG-ACTING IM [Suspect]
     Dosage: 300 mg, UNK
     Route: 030
     Dates: start: 20120213
  4. OLANZAPINE LONG-ACTING IM [Suspect]
     Dosage: 300 mg, UNK
     Route: 030
     Dates: start: 20120227
  5. OLANZAPINE [Suspect]
     Dosage: 405 mg, UNK
     Route: 030
     Dates: start: 20120312
  6. OLANZAPINE [Suspect]
     Dosage: 405 mg, UNK
     Route: 030
     Dates: start: 20120409
  7. OLANZAPINE [Suspect]
     Dosage: 300 mg, UNK
     Route: 030
     Dates: start: 20120430
  8. KEPPRA [Concomitant]
     Indication: MOOD ALTERED
     Dosage: 750 mg, bid
  9. COGENTIN [Concomitant]
     Indication: ADVERSE DRUG REACTION
     Dosage: 1 mg, bid
  10. TRAZODONE [Concomitant]
     Indication: MOOD ALTERED

REACTIONS (11)
  - Aggression [Not Recovered/Not Resolved]
  - Agitation [Not Recovered/Not Resolved]
  - Anxiety [Not Recovered/Not Resolved]
  - Confusional state [Not Recovered/Not Resolved]
  - Delirium [Not Recovered/Not Resolved]
  - Disorientation [Not Recovered/Not Resolved]
  - Tachycardia [Not Recovered/Not Resolved]
  - Depressed level of consciousness [Not Recovered/Not Resolved]
  - Gait disturbance [Not Recovered/Not Resolved]
  - Dysarthria [Not Recovered/Not Resolved]
  - Sedation [Not Recovered/Not Resolved]
